FAERS Safety Report 6023578-3 (Version None)
Quarter: 2008Q4

REPORT INFORMATION
  Report Type: 
  Country: None (occurrence: None)
  Receive Date: 20081226
  Receipt Date: 20081226
  Transmission Date: 20090506
  Serious: Yes (Other)
  Sender: FDA-Public Use
  Company Number: None

PATIENT
  Age: 31 Year
  Sex: Female
  Weight: 60.3284 kg

DRUGS (1)
  1. SERTRALINE [Suspect]
     Indication: GENERALISED ANXIETY DISORDER
     Dosage: 150 MG DAILY PO
     Route: 048

REACTIONS (5)
  - DYSPEPSIA [None]
  - DYSPHAGIA [None]
  - GASTRIC DISORDER [None]
  - NAUSEA [None]
  - PRODUCT QUALITY ISSUE [None]
